FAERS Safety Report 8171520-1 (Version None)
Quarter: 2012Q1

REPORT INFORMATION
  Report Type: 
  Country: None (occurrence: None)
  Receive Date: 20120228
  Receipt Date: 20120220
  Transmission Date: 20120608
  Serious: Yes (Hospitalization)
  Sender: FDA-Public Use
  Company Number: ES-PURDUE-GBR_2009_0004998

PATIENT

DRUGS (6)
  1. MORPHINE SULFATE [Suspect]
     Indication: PAIN
     Dosage: 20 MG, DAILY
     Route: 048
     Dates: start: 20090101, end: 20090204
  2. ENALAPRIL MALEATE [Concomitant]
     Indication: BLOOD PRESSURE INCREASED
     Dosage: 10 MG, DAILY
     Route: 048
     Dates: start: 20080101
  3. ESERTIA [Concomitant]
     Indication: DEPRESSION
     Dosage: 20 MG, DAILY
     Route: 048
     Dates: start: 20080101
  4. CLORAZEPATE DIPOTASSIUM [Concomitant]
     Indication: DEPRESSION
     Dosage: 5 MG, DAILY
     Route: 048
     Dates: start: 20080101
  5. OMEPRAZOLE [Concomitant]
     Indication: GASTRITIS PROPHYLAXIS
     Dosage: 20 MG, DAILY
     Route: 048
     Dates: start: 20080101
  6. DURAGESIC-100 [Suspect]
     Indication: PAIN
     Dosage: 75 MG, 72H
     Route: 062
     Dates: start: 20080101, end: 20090204

REACTIONS (5)
  - INCOHERENT [None]
  - CONSTIPATION [None]
  - TOXICITY TO VARIOUS AGENTS [None]
  - SOMNOLENCE [None]
  - TREMOR [None]
